FAERS Safety Report 14746408 (Version 1)
Quarter: 2018Q2

REPORT INFORMATION
  Report Type: Spontaneous
  Country: US (occurrence: US)
  Receive Date: 20180411
  Receipt Date: 20180411
  Transmission Date: 20180711
  Serious: No
  Sender: FDA-Public Use
  Company Number: US-TEVA-2018-US-869989

PATIENT
  Sex: Female

DRUGS (13)
  1. ATORVASTATIN [Concomitant]
     Active Substance: ATORVASTATIN
  2. MODAFINIL. [Concomitant]
     Active Substance: MODAFINIL
  3. AMANTADINE. [Concomitant]
     Active Substance: AMANTADINE HYDROCHLORIDE
  4. VITAMIN D [Concomitant]
     Active Substance: CHOLECALCIFEROL
     Dosage: 50000 UNIT
  5. AMITIZA [Concomitant]
     Active Substance: LUBIPROSTONE
  6. DULOXETINE. [Concomitant]
     Active Substance: DULOXETINE
  7. LINZESS [Concomitant]
     Active Substance: LINACLOTIDE
  8. DICLOFENOC 50 MG DR [Concomitant]
  9. OMEPRAZOLE. [Concomitant]
     Active Substance: OMEPRAZOLE
  10. COPAXONE [Suspect]
     Active Substance: GLATIRAMER ACETATE
     Indication: MULTIPLE SCLEROSIS
     Route: 058
     Dates: start: 20160924
  11. BACLOFEN. [Concomitant]
     Active Substance: BACLOFEN
  12. VOLTAREN [Concomitant]
     Active Substance: DICLOFENAC SODIUM
  13. NAPROXEN. [Concomitant]
     Active Substance: NAPROXEN

REACTIONS (2)
  - Drug dose omission [Unknown]
  - Malaise [Not Recovered/Not Resolved]
